FAERS Safety Report 13112662 (Version 1)
Quarter: 2017Q1

REPORT INFORMATION
  Report Type: Report from Study
  Country: US (occurrence: US)
  Receive Date: 20170113
  Receipt Date: 20170113
  Transmission Date: 20170428
  Serious: Yes (Other)
  Sender: FDA-Public Use
  Company Number: US-ROCHE-1877597

PATIENT
  Sex: Female

DRUGS (6)
  1. LUCENTIS [Suspect]
     Active Substance: RANIBIZUMAB
     Dosage: ONGOING: UNKNOWN
     Route: 050
     Dates: start: 201503
  2. LUCENTIS [Suspect]
     Active Substance: RANIBIZUMAB
     Indication: MACULAR OEDEMA
     Dosage: ONGOING: UNKNOWN
     Route: 050
     Dates: start: 201508
  3. LUCENTIS [Suspect]
     Active Substance: RANIBIZUMAB
     Route: 050
  4. PROZAC [Concomitant]
     Active Substance: FLUOXETINE HYDROCHLORIDE
  5. LUCENTIS [Suspect]
     Active Substance: RANIBIZUMAB
     Indication: TYPE 2 DIABETES MELLITUS
     Dosage: ONGOING: UNKNOWN
     Route: 050
     Dates: start: 201603
  6. LUCENTIS [Suspect]
     Active Substance: RANIBIZUMAB
     Indication: DIABETIC RETINOPATHY
     Dosage: ONGOING: UNKNOWN
     Route: 050
     Dates: start: 201512

REACTIONS (5)
  - Vision blurred [Unknown]
  - Diabetes mellitus [Unknown]
  - Eye haemorrhage [Unknown]
  - Memory impairment [Unknown]
  - Myocardial infarction [Unknown]
